FAERS Safety Report 22365606 (Version 1)
Quarter: 2023Q2

REPORT INFORMATION
  Report Type: Spontaneous
  Country: US (occurrence: US)
  Receive Date: 20230525
  Receipt Date: 20230525
  Transmission Date: 20230721
  Serious: No
  Sender: FDA-Public Use
  Company Number: US-SA-SAC20230524000958

PATIENT
  Age: 76 Year
  Sex: Female

DRUGS (1)
  1. DUPIXENT [Suspect]
     Active Substance: DUPILUMAB
     Indication: Dermatitis
     Dosage: 300MG QOW
     Route: 058
     Dates: start: 20230512

REACTIONS (5)
  - Pain of skin [Unknown]
  - Insomnia [Unknown]
  - Paraesthesia [Unknown]
  - Skin burning sensation [Unknown]
  - Product use in unapproved indication [Unknown]
